FAERS Safety Report 12249146 (Version 1)
Quarter: 2016Q2

REPORT INFORMATION
  Report Type: Spontaneous
  Country: US (occurrence: None)
  Receive Date: 20160407
  Receipt Date: 20160407
  Transmission Date: 20160815
  Serious: Yes (Hospitalization)
  Sender: FDA-Public Use
  Company Number: None

PATIENT
  Age: 68 Year
  Sex: Male
  Weight: 155.4 kg

DRUGS (2)
  1. SPIRONOLACTONE. [Suspect]
     Active Substance: SPIRONOLACTONE
     Indication: LEFT VENTRICULAR DYSFUNCTION
     Route: 048
     Dates: start: 20090909, end: 20160210
  2. FUROSEMIDE. [Suspect]
     Active Substance: FUROSEMIDE
     Indication: LEFT VENTRICULAR DYSFUNCTION
     Route: 048
     Dates: start: 20140617, end: 20160210

REACTIONS (7)
  - Choking [None]
  - Dehydration [None]
  - Unresponsive to stimuli [None]
  - Acute kidney injury [None]
  - Respiratory arrest [None]
  - Fall [None]
  - Hypoglycaemia [None]

NARRATIVE: CASE EVENT DATE: 20160210
